FAERS Safety Report 5464925-0 (Version None)
Quarter: 2007Q3

REPORT INFORMATION
  Report Type: 
  Country: None (occurrence: None)
  Receive Date: 20070921
  Receipt Date: 20070912
  Transmission Date: 20080115
  Serious: Yes (Other)
  Sender: FDA-Public Use
  Company Number: FR-PFIZER INC-2007076952

PATIENT
  Age: 57 Year
  Sex: Male

DRUGS (2)
  1. LYRICA [Suspect]
     Indication: DIABETIC NEUROPATHY
  2. DRUG, UNSPECIFIED [Concomitant]
     Indication: DIABETES MELLITUS

REACTIONS (2)
  - THROMBOCYTOPENIA [None]
  - TOXIC SKIN ERUPTION [None]
